FAERS Safety Report 20154630 (Version 1)
Quarter: 2021Q4

REPORT INFORMATION
  Report Type: Other
  Country: CZ (occurrence: CZ)
  Receive Date: 20211207
  Receipt Date: 20211207
  Transmission Date: 20220303
  Serious: Yes (Other)
  Sender: FDA-Public Use
  Company Number: CZ-Accord-245183

PATIENT
  Age: 65 Year
  Sex: Female

DRUGS (12)
  1. BENDAMUSTINE HYDROCHLORIDE [Suspect]
     Active Substance: BENDAMUSTINE HYDROCHLORIDE
     Indication: Product used for unknown indication
     Dosage: 3 CYCLE
     Route: 065
     Dates: start: 202011
  2. RITUXIMAB [Suspect]
     Active Substance: RITUXIMAB
     Indication: Product used for unknown indication
     Dosage: 3 CYCLE
     Route: 065
     Dates: start: 202011
  3. PREDNISONE [Suspect]
     Active Substance: PREDNISONE
     Indication: Marginal zone lymphoma
     Dosage: 5TH AND 6TH CHEMOTHERAPEUTIC CYCLES WERE REDUCED TO 75% OF THE ORIGINAL DOSE
     Route: 065
     Dates: start: 201907
  4. PREDNISONE [Suspect]
     Active Substance: PREDNISONE
     Dosage: 4 CYCLES
     Route: 065
     Dates: start: 201903
  5. VINCRISTINE [Suspect]
     Active Substance: VINCRISTINE
     Indication: Marginal zone lymphoma
     Dosage: 4 CYCLES
     Route: 065
     Dates: start: 201903
  6. VINCRISTINE [Suspect]
     Active Substance: VINCRISTINE
     Dosage: 5TH AND 6TH CHEMOTHERAPEUTIC CYCLES WERE REDUCED TO 75% OF THE ORIGINAL DOSE
     Route: 065
     Dates: start: 201907
  7. CYCLOPHOSPHAMIDE [Suspect]
     Active Substance: CYCLOPHOSPHAMIDE
     Indication: Marginal zone lymphoma
     Dosage: 4 CYCLES
     Route: 065
     Dates: start: 201903
  8. CYCLOPHOSPHAMIDE [Suspect]
     Active Substance: CYCLOPHOSPHAMIDE
     Dosage: 5TH AND 6TH CHEMOTHERAPEUTIC CYCLES WERE REDUCED TO 75% OF THE ORIGINAL DOSE
     Route: 065
     Dates: start: 201907
  9. MABTHERA [Suspect]
     Active Substance: RITUXIMAB
     Indication: Marginal zone lymphoma
     Dosage: 4 CYCLES
     Route: 065
     Dates: start: 201903
  10. MABTHERA [Suspect]
     Active Substance: RITUXIMAB
     Dosage: 5TH AND 6TH CHEMOTHERAPEUTIC CYCLES WERE REDUCED TO 75% OF THE ORIGINAL DOSE
     Route: 065
     Dates: start: 201907
  11. DOXORUBICIN HYDROCHLORIDE [Suspect]
     Active Substance: DOXORUBICIN HYDROCHLORIDE
     Indication: Marginal zone lymphoma
     Dosage: 4 CYCLES
     Route: 065
     Dates: start: 201903
  12. DOXORUBICIN HYDROCHLORIDE [Suspect]
     Active Substance: DOXORUBICIN HYDROCHLORIDE
     Dosage: 5TH AND 6TH CHEMOTHERAPEUTIC CYCLES WERE REDUCED TO 75% OF THE ORIGINAL DOSE
     Route: 065
     Dates: start: 201907

REACTIONS (6)
  - Pruritus [Unknown]
  - Off label use [Unknown]
  - Cytopenia [Not Recovered/Not Resolved]
  - Tremor [Recovering/Resolving]
  - Nausea [Unknown]
  - Vomiting [Unknown]
